FAERS Safety Report 8370211-1 (Version None)
Quarter: 2012Q2

REPORT INFORMATION
  Report Type: 
  Country: None (occurrence: None)
  Receive Date: 20120518
  Receipt Date: 20120507
  Transmission Date: 20120825
  Serious: Yes (Hospitalization)
  Sender: FDA-Public Use
  Company Number: US-ELI_LILLY_AND_COMPANY-US201205002126

PATIENT
  Sex: Female

DRUGS (10)
  1. FUROSEMIDE [Concomitant]
     Dosage: UNK
     Dates: start: 20120403, end: 20120407
  2. GLYBURIDE [Concomitant]
     Indication: TYPE 2 DIABETES MELLITUS
     Dosage: 5 MG, UNK
  3. DIURETICS [Concomitant]
  4. CARBOPLATIN [Concomitant]
  5. DIPHENHYDRAMINE HCL [Concomitant]
     Dosage: UNK
     Dates: start: 20120403, end: 20120407
  6. GEMZAR [Suspect]
     Dosage: UNK
  7. METFORMIN HCL [Concomitant]
     Indication: TYPE 2 DIABETES MELLITUS
     Dosage: 2000 MG, UNK
  8. ASPIRIN [Concomitant]
  9. ACE INHIBITORS [Concomitant]
  10. ACETAMINOPHEN [Concomitant]
     Dosage: UNK
     Dates: start: 20120404

REACTIONS (4)
  - RECTAL HAEMORRHAGE [None]
  - HAEMATOCRIT DECREASED [None]
  - ASTHENIA [None]
  - BLOOD POTASSIUM DECREASED [None]
